FAERS Safety Report 12328764 (Version 1)
Quarter: 2016Q2

REPORT INFORMATION
  Report Type: Spontaneous
  Country: US (occurrence: US)
  Receive Date: 20160503
  Receipt Date: 20160503
  Transmission Date: 20160815
  Serious: No
  Sender: FDA-Public Use
  Company Number: US-BEH-2015050620

PATIENT
  Sex: Female
  Weight: 47 kg

DRUGS (14)
  1. LIDOCAINE/ PRILOCAINE [Concomitant]
     Dosage: 1 DOSE AS DIRECTED
     Route: 061
  2. ACETAMINOPHEN 325 MG [Concomitant]
     Active Substance: ACETAMINOPHEN
     Dosage: 325 MG AS DIRECTED
     Route: 048
  3. ALPRAZOLAM. [Concomitant]
     Active Substance: ALPRAZOLAM
     Dosage: 0.5MG AS NEEDED
     Route: 048
  4. HIZENTRA [Suspect]
     Active Substance: HUMAN IMMUNOGLOBULIN G
     Indication: IMMUNODEFICIENCY COMMON VARIABLE
     Route: 058
  5. ZYRTEC [Concomitant]
     Active Substance: CETIRIZINE HYDROCHLORIDE
     Dosage: 10 MG DAILY
     Route: 048
  6. FLUTICASONE [Concomitant]
     Active Substance: FLUTICASONE\FLUTICASONE PROPIONATE
     Dosage: 50 MCG,AS DIRECTED
  7. SINGULAIR [Concomitant]
     Active Substance: MONTELUKAST SODIUM
     Dosage: 10 MG DAILY
     Route: 048
  8. QVAR [Concomitant]
     Active Substance: BECLOMETHASONE DIPROPIONATE
     Dosage: 80 MCG, 2 PUFFS TWICE DAILY
  9. HIZENTRA [Suspect]
     Active Substance: HUMAN IMMUNOGLOBULIN G
     Route: 058
  10. NUTROPIN AQ [Concomitant]
     Active Substance: SOMATROPIN
     Dosage: 1 DOSE AS DIRECTED
  11. PROAIR HFA [Concomitant]
     Active Substance: ALBUTEROL SULFATE
     Dosage: 1 DOSE AS NEEDED
  12. XOPENEX [Concomitant]
     Active Substance: LEVALBUTEROL HYDROCHLORIDE
     Dosage: 1 DOSE AS NEEDED.
  13. DIPHENHYDRAMINE 25 MG [Concomitant]
     Dosage: 25 MG AS DIRECTED
     Route: 048
  14. EPIPEN [Concomitant]
     Active Substance: EPINEPHRINE
     Dosage: 0.3 MG AS NEEDED
     Route: 030

REACTIONS (1)
  - Pruritus [Unknown]
